FAERS Safety Report 9572371 (Version 3)
Quarter: 2013Q4

REPORT INFORMATION
  Report Type: Spontaneous
  Country: BE (occurrence: BE)
  Receive Date: 20131001
  Receipt Date: 20131007
  Transmission Date: 20140711
  Serious: Yes (Hospitalization)
  Sender: FDA-Public Use
  Company Number: ALCN2013BE004782

PATIENT
  Age: 56 Year
  Sex: Female

DRUGS (1)
  1. TOBREX [Suspect]
     Dosage: UNK
     Route: 047
     Dates: start: 20130917

REACTIONS (2)
  - Product packaging issue [Recovered/Resolved]
  - Foreign body in eye [Recovered/Resolved]
